FAERS Safety Report 4940673-8 (Version None)
Quarter: 2006Q1

REPORT INFORMATION
  Report Type: 
  Country: None (occurrence: None)
  Receive Date: 20060127
  Receipt Date: 20051018
  Transmission Date: 20060701
  Serious: Yes (Other)
  Sender: FDA-Public Use
  Company Number: 2005145936

PATIENT
  Age: 39 Year
  Sex: Female
  Weight: 61.2356 kg

DRUGS (3)
  1. LYRICA [Suspect]
     Indication: NEUROPATHY
     Dosage: (ONE TIME ONLY)
     Dates: start: 20051018, end: 20051018
  2. OXYCONTIN [Concomitant]
  3. DEMEROL [Concomitant]

REACTIONS (4)
  - BALANCE DISORDER [None]
  - NERVOUSNESS [None]
  - PAIN [None]
  - VISUAL DISTURBANCE [None]
